FAERS Safety Report 14697916 (Version 1)
Quarter: 2018Q1

REPORT INFORMATION
  Report Type: Spontaneous
  Country: DE (occurrence: DE)
  Receive Date: 20180330
  Receipt Date: 20180330
  Transmission Date: 20180509
  Serious: Yes (Other)
  Sender: FDA-Public Use
  Company Number: DE-ROCHE-2088119

PATIENT
  Age: 42 Year
  Sex: Male
  Weight: 80 kg

DRUGS (2)
  1. CELLCEPT [Suspect]
     Active Substance: MYCOPHENOLATE MOFETIL\MYCOPHENOLATE MOFETIL HYDROCHLORIDE
     Indication: PRODUCT USED FOR UNKNOWN INDICATION
     Route: 048
  2. CEFPODOXIME [Concomitant]
     Active Substance: CEFPODOXIME
     Indication: OTITIS MEDIA
     Route: 048
     Dates: start: 201801

REACTIONS (3)
  - Immunosuppressant drug level decreased [Unknown]
  - Pyrexia [Unknown]
  - Body temperature increased [Unknown]

NARRATIVE: CASE EVENT DATE: 201801
